FAERS Safety Report 9101121 (Version 1)
Quarter: 2013Q1

REPORT INFORMATION
  Report Type: Spontaneous
  Country: CO (occurrence: CO)
  Receive Date: 20130218
  Receipt Date: 20130218
  Transmission Date: 20140127
  Serious: Yes (Life-Threatening, Hospitalization)
  Sender: FDA-Public Use
  Company Number: CO-ASTRAZENECA-2013SE10259

PATIENT
  Age: 56 Year
  Sex: Female
  Weight: 91.8 kg

DRUGS (49)
  1. MEROPENEM [Suspect]
     Indication: PNEUMONIA
     Route: 042
     Dates: start: 20100924, end: 20100929
  2. MEROPENEM [Suspect]
     Indication: PNEUMONIA
     Route: 042
     Dates: start: 20121014, end: 20121020
  3. VANCOMYCIN [Suspect]
     Indication: KLEBSIELLA INFECTION
     Route: 042
     Dates: start: 20101018, end: 20101025
  4. CELECOXIB/IBUPROFEN-NAPROXEN/PLACEBO [Suspect]
     Indication: OSTEOARTHRITIS
     Dosage: THREE TIMES A DAY
     Route: 048
     Dates: start: 20090415, end: 20100916
  5. CELECOXIB/IBUPROFEN-NAPROXEN/PLACEBO [Suspect]
     Indication: RHEUMATOID ARTHRITIS
     Dosage: THREE TIMES A DAY
     Route: 048
     Dates: start: 20090415, end: 20100916
  6. CELECOXIB/IBUPROFEN-NAPROXEN/PLACEBO [Suspect]
     Indication: OSTEOARTHRITIS
     Dosage: THREE TIMES A DAY
     Route: 048
     Dates: start: 20110125
  7. CELECOXIB/IBUPROFEN-NAPROXEN/PLACEBO [Suspect]
     Indication: RHEUMATOID ARTHRITIS
     Dosage: THREE TIMES A DAY
     Route: 048
     Dates: start: 20110125
  8. PREDNISOLON [Suspect]
     Indication: RHEUMATOID ARTHRITIS
     Dates: start: 20060101, end: 20090820
  9. PREDNISOLON [Suspect]
     Indication: ARTHRALGIA
     Dates: start: 20060101, end: 20090820
  10. PREDNISOLON [Suspect]
     Indication: RHEUMATOID ARTHRITIS
     Dates: start: 20090821, end: 20090825
  11. PREDNISOLON [Suspect]
     Indication: ARTHRALGIA
     Dates: start: 20090821, end: 20090825
  12. PREDNISOLON [Suspect]
     Indication: RHEUMATOID ARTHRITIS
     Dates: start: 20090826, end: 20100915
  13. PREDNISOLON [Suspect]
     Indication: ARTHRALGIA
     Dates: start: 20090826, end: 20100915
  14. PREDNISOLON [Suspect]
     Indication: RHEUMATOID ARTHRITIS
     Dates: start: 20100916, end: 20100916
  15. PREDNISOLON [Suspect]
     Indication: ARTHRALGIA
     Dates: start: 20100916, end: 20100916
  16. PREDNISOLON [Suspect]
     Indication: RHEUMATOID ARTHRITIS
     Dates: start: 20101014, end: 20101014
  17. PREDNISOLON [Suspect]
     Indication: ARTHRALGIA
     Dates: start: 20101014, end: 20101014
  18. PREDNISOLON [Suspect]
     Indication: RHEUMATOID ARTHRITIS
     Dates: start: 20101015, end: 20101019
  19. PREDNISOLON [Suspect]
     Indication: ARTHRALGIA
     Dates: start: 20101015, end: 20101019
  20. PREDNISOLON [Suspect]
     Indication: RHEUMATOID ARTHRITIS
     Dates: start: 20101206
  21. PREDNISOLON [Suspect]
     Indication: ARTHRALGIA
     Dates: start: 20101206
  22. NEXIUM [Concomitant]
     Route: 048
     Dates: start: 20090414, end: 20100916
  23. NEXIUM [Concomitant]
     Route: 048
     Dates: start: 20110125
  24. LOVASTATIN [Concomitant]
     Dates: start: 20090806
  25. FUROSEMIDE [Concomitant]
     Indication: HYPERTENSION
     Dates: start: 201006
  26. FUROSEMIDE [Concomitant]
     Indication: HYPERTENSION
     Dosage: TWO DOSES OF 20 MG AND 1 DOSE OG 60 MG
     Route: 042
     Dates: start: 20100916, end: 20100916
  27. FUROSEMIDE [Concomitant]
     Indication: HYPERTENSION
     Route: 042
     Dates: start: 20100918, end: 20100918
  28. FUROSEMIDE [Concomitant]
     Indication: HYPERTENSION
     Route: 042
     Dates: start: 20100921, end: 20100922
  29. FUROSEMIDE [Concomitant]
     Indication: HYPERTENSION
     Route: 042
     Dates: start: 20100922, end: 20100923
  30. FUROSEMIDE [Concomitant]
     Indication: HYPERTENSION
     Route: 042
     Dates: start: 20100924, end: 20100924
  31. FUROSEMIDE [Concomitant]
     Indication: HYPERTENSION
     Route: 042
     Dates: start: 20100925, end: 20100925
  32. FUROSEMIDE [Concomitant]
     Indication: HYPERTENSION
     Route: 042
     Dates: start: 20100925, end: 20100927
  33. FUROSEMIDE [Concomitant]
     Indication: HYPERTENSION
     Dosage: 20 MG AND 40 MG EVERY 8 HOURS
     Route: 042
     Dates: end: 20100927
  34. FUROSEMIDE [Concomitant]
     Indication: HYPERTENSION
     Route: 042
     Dates: start: 20100929, end: 20101002
  35. FUROSEMIDE [Concomitant]
     Indication: HYPERTENSION
     Route: 042
     Dates: start: 20101020, end: 20101020
  36. FUROSEMIDE [Concomitant]
     Indication: HYPERTENSION
     Route: 042
     Dates: start: 20101022
  37. FUROSEMIDE [Concomitant]
     Indication: HYPERTENSION
     Route: 042
     Dates: start: 20101003, end: 20101003
  38. FUROSEMIDE [Concomitant]
     Indication: HYPERTENSION
     Route: 042
     Dates: start: 20101004, end: 20101005
  39. FUROSEMIDE [Concomitant]
     Indication: HYPERTENSION
     Route: 042
     Dates: start: 20101006, end: 20101007
  40. FUROSEMIDE [Concomitant]
     Indication: HYPERTENSION
     Route: 042
     Dates: start: 20101009, end: 20101010
  41. METOCLOPRAMIDE [Concomitant]
     Route: 042
     Dates: start: 20101010, end: 20101104
  42. CLONIDINE [Concomitant]
     Route: 042
     Dates: start: 20101014, end: 20101021
  43. LOSARTAN [Concomitant]
     Indication: HYPERTENSION
     Dates: start: 200906, end: 20100916
  44. LOSARTAN [Concomitant]
     Indication: HYPERTENSION
     Dates: start: 20101002, end: 20101003
  45. LOSARTAN [Concomitant]
     Indication: HYPERTENSION
     Dates: start: 20101009, end: 20101012
  46. LOSARTAN [Concomitant]
     Indication: HYPERTENSION
     Dates: start: 20101206
  47. ACETYLSALICYLIC ACID [Concomitant]
  48. AMITRIPTYLINE [Concomitant]
  49. METOPROLOL [Concomitant]

REACTIONS (13)
  - Renal failure [Recovered/Resolved]
  - Respiratory failure [Recovered/Resolved]
  - Polyneuropathy [Recovered/Resolved]
  - Myopathy [Recovered/Resolved]
  - Thrombophlebitis septic [Recovered/Resolved]
  - Multi-organ failure [Unknown]
  - Phlebitis [Recovered/Resolved]
  - Bacteraemia [Recovered/Resolved]
  - Pneumonia [Recovered/Resolved]
  - Pneumonia bacterial [Recovered/Resolved]
  - Klebsiella infection [Recovered/Resolved]
  - Anaemia [Recovered/Resolved]
  - Septic shock [Recovered/Resolved]
